FAERS Safety Report 7428511-5 (Version None)
Quarter: 2011Q2

REPORT INFORMATION
  Report Type: 
  Country: None (occurrence: None)
  Receive Date: 20110421
  Receipt Date: 20110413
  Transmission Date: 20111010
  Serious: Yes (Other)
  Sender: FDA-Public Use
  Company Number: GB-SANOFI-AVENTIS-2011SA022526

PATIENT
  Sex: Female

DRUGS (3)
  1. XELODA [Suspect]
  2. AVASTIN [Suspect]
  3. OXALIPLATIN [Suspect]

REACTIONS (1)
  - CARDIAC DISORDER [None]
